FAERS Safety Report 4521028-7 (Version None)
Quarter: 2004Q4

REPORT INFORMATION
  Report Type: 
  Country: None (occurrence: None)
  Receive Date: 20041208
  Receipt Date: 20041202
  Transmission Date: 20050328
  Serious: Yes (Hospitalization)
  Sender: FDA-Public Use
  Company Number: 200419262US

PATIENT
  Age: 86 Year
  Sex: Female
  Weight: 63.6 kg

DRUGS (12)
  1. LOVENOX [Suspect]
     Indication: PROPHYLAXIS
     Dates: start: 20041201
  2. BACTRIM DS [Concomitant]
     Indication: URINARY TRACT INFECTION
     Dosage: DOSE: UNK
     Dates: start: 20041201
  3. LASIX [Concomitant]
     Route: 048
  4. COUMADIN [Concomitant]
     Route: 048
     Dates: start: 19910101
  5. ARICEPT [Concomitant]
     Dosage: DOSE: UNK
  6. ATIVAN [Concomitant]
     Dosage: DOSE: UNK
  7. NAMENDA [Concomitant]
     Dosage: DOSE: UNK
  8. NUBAIN [Concomitant]
  9. REGLAN [Concomitant]
     Dosage: DOSE: UNK
  10. SEROQUEL [Concomitant]
     Dosage: DOSE: UNK
  11. TENORMIN [Concomitant]
     Dosage: DOSE: UNK
  12. TYLENOL (CAPLET) [Concomitant]
     Dosage: DOSE: UNK

REACTIONS (3)
  - ACTIVATED PARTIAL THROMBOPLASTIN TIME PROLONGED [None]
  - INTERNATIONAL NORMALISED RATIO INCREASED [None]
  - PROTHROMBIN TIME PROLONGED [None]
